FAERS Safety Report 5100994-5 (Version None)
Quarter: 2006Q3

REPORT INFORMATION
  Report Type: 
  Country: None (occurrence: None)
  Receive Date: 20060911
  Receipt Date: 20060830
  Transmission Date: 20061208
  Serious: Yes (Other)
  Sender: FDA-Public Use
  Company Number: GB-BRISTOL-MYERS SQUIBB COMPANY-13493671

PATIENT
  Age: 4 Month
  Sex: Female
  Weight: 3 kg

DRUGS (2)
  1. STAVUDINE [Suspect]
     Indication: PROPHYLAXIS AGAINST HIV INFECTION
     Route: 048
     Dates: start: 19981115, end: 19991201
  2. CO-TRIMOXAZOLE [Concomitant]
     Route: 048

REACTIONS (1)
  - PRECOCIOUS PUBERTY [None]
